FAERS Safety Report 5337115-X (Version None)
Quarter: 2007Q2

REPORT INFORMATION
  Report Type: 
  Country: None (occurrence: None)
  Receive Date: 20070529
  Receipt Date: 20070515
  Transmission Date: 20071010
  Serious: Yes (Death, Life-Threatening, Hospitalization, Other)
  Sender: FDA-Public Use
  Company Number: US-ELI_LILLY_AND_COMPANY-US200703002306

PATIENT
  Age: 61 Year
  Sex: Female
  Weight: 102 kg

DRUGS (2)
  1. PEMETREXED [Suspect]
     Indication: NON-SMALL CELL LUNG CANCER METASTATIC
     Dosage: UNK, OTHER
     Route: 042
     Dates: start: 20061130
  2. *OTHER PHARMA COMPANY INV DRUG [Suspect]
     Indication: NON-SMALL CELL LUNG CANCER METASTATIC
     Dosage: 250 MG, OTHER
     Route: 048
     Dates: start: 20061130

REACTIONS (2)
  - BACTERAEMIA [None]
  - INTESTINAL INFARCTION [None]
